FAERS Safety Report 10256086 (Version 1)
Quarter: 2014Q2

REPORT INFORMATION
  Report Type: Report from Study
  Country: KR (occurrence: KR)
  Receive Date: 20140624
  Receipt Date: 20140624
  Transmission Date: 20141212
  Serious: Yes (Hospitalization)
  Sender: FDA-Public Use
  Company Number: KR-BAXTER-2014BAX032782

PATIENT
  Age: 72 Year
  Sex: Male
  Weight: 80 kg

DRUGS (4)
  1. EXTRANEAL [Suspect]
     Indication: PERITONEAL DIALYSIS
     Route: 033
     Dates: start: 201305
  2. EXTRANEAL [Suspect]
     Indication: RENAL FAILURE CHRONIC
  3. PHYSIONEAL 2.5% [Suspect]
     Indication: PERITONEAL DIALYSIS
     Route: 033
     Dates: start: 201305
  4. PHYSIONEAL 2.5% [Suspect]
     Indication: RENAL FAILURE CHRONIC

REACTIONS (1)
  - Aphagia [Not Recovered/Not Resolved]
